FAERS Safety Report 14480167 (Version 1)
Quarter: 2018Q1

REPORT INFORMATION
  Report Type: Spontaneous
  Country: US (occurrence: US)
  Receive Date: 20180201
  Receipt Date: 20180201
  Transmission Date: 20180509
  Serious: Yes (Other)
  Sender: FDA-Public Use
  Company Number: None

PATIENT
  Sex: Female
  Weight: 54 kg

DRUGS (9)
  1. LAMOTROGINE [Concomitant]
     Active Substance: LAMOTRIGINE
  2. DIVALPROEX SODIUM. [Concomitant]
     Active Substance: DIVALPROEX SODIUM
  3. MULTI VITAMIN [Concomitant]
     Active Substance: VITAMINS
  4. FYCOMPA [Suspect]
     Active Substance: PERAMPANEL
     Indication: SEIZURE
     Dosage: ?          QUANTITY:1 TABLET(S);?
     Route: 048
     Dates: start: 20160102, end: 20160210
  5. VITAMIN D [Concomitant]
     Active Substance: CHOLECALCIFEROL
  6. IRON [Concomitant]
     Active Substance: IRON
  7. VITAMIN B6 [Concomitant]
     Active Substance: PYRIDOXINE HYDROCHLORIDE
  8. FOLIC ACID. [Concomitant]
     Active Substance: FOLIC ACID
  9. BIOTIN [Concomitant]
     Active Substance: BIOTIN

REACTIONS (3)
  - Anger [None]
  - Suicidal ideation [None]
  - Homicidal ideation [None]

NARRATIVE: CASE EVENT DATE: 20160210
